FAERS Safety Report 6510953-3 (Version None)
Quarter: 2009Q4

REPORT INFORMATION
  Report Type: 
  Country: None (occurrence: None)
  Receive Date: 20091222
  Receipt Date: 20090410
  Transmission Date: 20100525
  Serious: No
  Sender: FDA-Public Use
  Company Number: US-ASTRAZENECA-2009UW03594

PATIENT
  Age: 65 Year
  Sex: Female
  Weight: 61.2 kg

DRUGS (3)
  1. CRESTOR [Suspect]
     Indication: DYSLIPIDAEMIA
     Route: 048
     Dates: start: 20080601, end: 20081001
  2. BONIVA [Concomitant]
  3. FEMORA PRO [Concomitant]

REACTIONS (4)
  - CHROMATURIA [None]
  - DIZZINESS [None]
  - MUSCLE SPASMS [None]
  - OEDEMA PERIPHERAL [None]
